FAERS Safety Report 8809637 (Version 2)
Quarter: 2012Q4

REPORT INFORMATION
  Report Type: 
  Country: US (occurrence: US)
  Receive Date: 20120926
  Receipt Date: 20121122
  Transmission Date: 20130627
  Serious: Yes (Death)
  Sender: FDA-Public Use
  Company Number: US-ROCHE-1129571

PATIENT
  Age: 60 Year
  Sex: Male

DRUGS (3)
  1. AVASTIN [Suspect]
     Indication: BRAIN NEOPLASM MALIGNANT
     Route: 065
     Dates: start: 20070907, end: 20071105
  2. AVASTIN [Suspect]
     Indication: GLIOBLASTOMA
  3. DECADRON [Concomitant]

REACTIONS (16)
  - Neoplasm progression [Fatal]
  - Hiccups [Not Recovered/Not Resolved]
  - Confusional state [Not Recovered/Not Resolved]
  - Nausea [Not Recovered/Not Resolved]
  - Vomiting [Not Recovered/Not Resolved]
  - Fatigue [Unknown]
  - Night sweats [Unknown]
  - Muscular weakness [Not Recovered/Not Resolved]
  - Constipation [Unknown]
  - Depression [Unknown]
  - Rash [Unknown]
  - Anoxia [Unknown]
  - Malaise [Unknown]
  - Hypersomnia [Unknown]
  - General physical health deterioration [Unknown]
  - Gait disturbance [Not Recovered/Not Resolved]
